FAERS Safety Report 5221536-X (Version None)
Quarter: 2007Q1

REPORT INFORMATION
  Report Type: 
  Country: None (occurrence: None)
  Receive Date: 20070127
  Receipt Date: 20070118
  Transmission Date: 20070707
  Serious: Yes (Hospitalization, Other)
  Sender: FDA-Public Use
  Company Number: CA-ABBOTT-07P-028-0356181-00

PATIENT
  Sex: Male

DRUGS (4)
  1. DILAUDID [Suspect]
     Indication: DRUG USE FOR UNKNOWN INDICATION
     Route: 048
  2. LUPRON DEPOT-3 [Suspect]
     Indication: PROSTATE CANCER
     Route: 030
     Dates: start: 20060704
  3. FENTANYL [Suspect]
     Indication: DRUG USE FOR UNKNOWN INDICATION
     Route: 062
  4. UNSPECIFIED NARCOTIC [Suspect]
     Indication: DRUG USE FOR UNKNOWN INDICATION
     Route: 048

REACTIONS (7)
  - ASTHENIA [None]
  - CEREBROVASCULAR DISORDER [None]
  - DISORIENTATION [None]
  - METASTASES TO BONE [None]
  - METASTASES TO LIVER [None]
  - PROSTATIC SPECIFIC ANTIGEN INCREASED [None]
  - STOMATITIS [None]
